FAERS Safety Report 9971739 (Version 1)
Quarter: 2014Q1

REPORT INFORMATION
  Report Type: Report from Study
  Country: US (occurrence: US)
  Receive Date: 20140306
  Receipt Date: 20140306
  Transmission Date: 20141002
  Serious: No
  Sender: FDA-Public Use
  Company Number: US-ABBVIE-13P-163-1152551-00

PATIENT
  Age: 51 Year
  Sex: Male

DRUGS (5)
  1. HUMIRA [Suspect]
     Indication: CROHN^S DISEASE
     Dates: start: 20130808, end: 20130808
  2. HUMIRA [Suspect]
     Dates: start: 20130822, end: 20130822
  3. HUMIRA [Suspect]
     Dates: start: 20130905, end: 20130905
  4. HUMIRA [Suspect]
     Dates: start: 20130919, end: 20130919
  5. HUMIRA [Suspect]

REACTIONS (2)
  - Incorrect dose administered [Recovered/Resolved]
  - Condition aggravated [Not Recovered/Not Resolved]
